FAERS Safety Report 7235808-0 (Version None)
Quarter: 2011Q1

REPORT INFORMATION
  Report Type: 
  Country: None (occurrence: None)
  Receive Date: 20110120
  Receipt Date: 20110112
  Transmission Date: 20110831
  Serious: Yes (Other)
  Sender: FDA-Public Use
  Company Number: FR-MPIJNJ-2011-00200

PATIENT

DRUGS (1)
  1. VELCADE [Suspect]
     Indication: MULTIPLE MYELOMA
     Dosage: UNK
     Dates: start: 20101220, end: 20101223

REACTIONS (3)
  - HYPOXIA [None]
  - ATRIAL SEPTAL DEFECT ACQUIRED [None]
  - DYSPNOEA [None]
